FAERS Safety Report 14391702 (Version 1)
Quarter: 2018Q1

REPORT INFORMATION
  Report Type: Spontaneous
  Country: US (occurrence: US)
  Receive Date: 20180112
  Receipt Date: 20180112
  Transmission Date: 20180509
  Serious: No
  Sender: FDA-Public Use
  Company Number: None

PATIENT
  Age: 66 Year
  Sex: Female

DRUGS (1)
  1. SUTENT [Suspect]
     Active Substance: SUNITINIB MALATE
     Indication: RENAL NEOPLASM
     Route: 048
     Dates: start: 20171226, end: 20180105

REACTIONS (8)
  - Dysgeusia [None]
  - Decreased appetite [None]
  - Fatigue [None]
  - Nausea [None]
  - Oesophageal ulcer [None]
  - Vomiting [None]
  - Stomatitis [None]
  - Confusional state [None]

NARRATIVE: CASE EVENT DATE: 20180105
